FAERS Safety Report 19256181 (Version 2)
Quarter: 2022Q1

REPORT INFORMATION
  Report Type: Spontaneous
  Country: IT (occurrence: IT)
  Receive Date: 20210513
  Receipt Date: 20220101
  Transmission Date: 20220423
  Serious: Yes (Other)
  Sender: FDA-Public Use
  Company Number: IT-AMGEN-ITASP2021067196

PATIENT
  Age: 33 Year
  Sex: Female
  Weight: 48 kg

DRUGS (3)
  1. ADALIMUMAB [Suspect]
     Active Substance: ADALIMUMAB
     Indication: Crohn^s disease
     Dosage: 40 MILLIGRAM IN 1 CYCLICAL
     Route: 058
     Dates: start: 20200102, end: 20201127
  2. ADALIMUMAB [Suspect]
     Active Substance: ADALIMUMAB
     Dosage: 40 MILLIGRAM IN 1 CYCLICAL
     Route: 058
     Dates: start: 202101
  3. HYRIMOZ [Suspect]
     Active Substance: ADALIMUMAB-ADAZ
     Indication: Crohn^s disease
     Dosage: 40 MILLIGRAM IN 1 CYCLICAL
     Route: 058
     Dates: start: 20200410, end: 20201127

REACTIONS (3)
  - Abortion induced [Unknown]
  - Maternal exposure during pregnancy [Unknown]
  - Folate deficiency [Unknown]

NARRATIVE: CASE EVENT DATE: 20201220
